FAERS Safety Report 7563821-2 (Version None)
Quarter: 2011Q2

REPORT INFORMATION
  Report Type: 
  Country: None (occurrence: None)
  Receive Date: 20110622
  Receipt Date: 20110613
  Transmission Date: 20111010
  Serious: Yes (Hospitalization, Other)
  Sender: FDA-Public Use
  Company Number: US-ALLERGAN-1108050US

PATIENT
  Age: 66 Year
  Sex: Male

DRUGS (1)
  1. LUMIGAN [Suspect]
     Indication: INTRAOCULAR PRESSURE INCREASED
     Dosage: 1 DROP INSTILLED TO EACH EYE ONCE DAILY
     Route: 047
     Dates: start: 20110518, end: 20110603

REACTIONS (2)
  - VITREOUS LOSS [None]
  - RETINAL TEAR [None]
